FAERS Safety Report 9976231 (Version 1)
Quarter: 2014Q1

REPORT INFORMATION
  Report Type: Report from Study
  Country: US (occurrence: US)
  Receive Date: 20140306
  Receipt Date: 20140306
  Transmission Date: 20141002
  Serious: No
  Sender: FDA-Public Use
  Company Number: US-ABBVIE-13P-163-1164271-00

PATIENT
  Age: 63 Year
  Sex: Female

DRUGS (8)
  1. HUMIRA [Suspect]
     Indication: RHEUMATOID ARTHRITIS
  2. LEVOTHYROXINE [Concomitant]
     Indication: PRODUCT USED FOR UNKNOWN INDICATION
     Dosage: 0.05 MG DAILY
  3. LOVASTATIN [Concomitant]
     Indication: PRODUCT USED FOR UNKNOWN INDICATION
  4. PERCOCET [Concomitant]
     Indication: PRODUCT USED FOR UNKNOWN INDICATION
     Dosage: 10/325 MG 4 TABLETS DAILY
  5. SOMA [Concomitant]
     Indication: BACK PAIN
     Dosage: 3 TABLETS DAILY
  6. DOXEPIN [Concomitant]
     Indication: INSOMNIA
  7. ATIVAN [Concomitant]
     Indication: PRODUCT USED FOR UNKNOWN INDICATION
     Dosage: 3 DAILY
  8. RESTORIL [Concomitant]
     Indication: PRODUCT USED FOR UNKNOWN INDICATION
     Dosage: 30 MG DAILY

REACTIONS (1)
  - Rheumatoid arthritis [Not Recovered/Not Resolved]
